FAERS Safety Report 4877514-3 (Version None)
Quarter: 2006Q1

REPORT INFORMATION
  Report Type: 
  Country: None (occurrence: None)
  Receive Date: 20060109
  Receipt Date: 20051227
  Transmission Date: 20060701
  Serious: No
  Sender: FDA-Public Use
  Company Number: 220675

PATIENT
  Age: 15 Year
  Sex: Male
  Weight: 28.6 kg

DRUGS (2)
  1. NUTROPIN [Suspect]
     Indication: GROWTH HORMONE DEFICIENCY
     Dosage: 1.4 MG, QD, SUBCUTANEOUS
     Route: 058
     Dates: start: 19980924
  2. SYNTHROID [Concomitant]

REACTIONS (1)
  - BONE SARCOMA [None]
